FAERS Safety Report 8998372 (Version 1)
Quarter: 2013Q1

REPORT INFORMATION
  Report Type: Spontaneous
  Country: US (occurrence: US)
  Receive Date: 20130105
  Receipt Date: 20130105
  Transmission Date: 20140127
  Serious: No
  Sender: FDA-Public Use
  Company Number: US-JNJFOC-20121114767

PATIENT
  Age: 3 Decade
  Sex: Male

DRUGS (1)
  1. INVEGA SUSTENNA [Suspect]
     Indication: SCHIZOPHRENIA
     Route: 030
     Dates: start: 2012, end: 2012

REACTIONS (3)
  - Blood prolactin increased [Unknown]
  - Gynaecomastia [Unknown]
  - Galactorrhoea [Unknown]
